FAERS Safety Report 12546840 (Version 2)
Quarter: 2016Q3

REPORT INFORMATION
  Report Type: Spontaneous
  Country: SE (occurrence: SE)
  Receive Date: 20160711
  Receipt Date: 20160726
  Transmission Date: 20161109
  Serious: Yes (Life-Threatening, Hospitalization, Other)
  Sender: FDA-Public Use
  Company Number: SE-ELI_LILLY_AND_COMPANY-SE201607003115

PATIENT
  Age: 57 Year
  Sex: Female
  Weight: 84 kg

DRUGS (1)
  1. OLANZAPINE. [Suspect]
     Active Substance: OLANZAPINE
     Indication: SCHIZOPHRENIA
     Dosage: 405 MG, MONTHLY (1/M)
     Route: 030

REACTIONS (18)
  - Blood pressure increased [Unknown]
  - Tachycardia [Recovering/Resolving]
  - Dysarthria [Recovering/Resolving]
  - Paranoia [Unknown]
  - Anticholinergic syndrome [Recovering/Resolving]
  - Somnolence [Recovering/Resolving]
  - Vulval cancer [Unknown]
  - Drug level above therapeutic [Recovering/Resolving]
  - Agitation [Recovering/Resolving]
  - Pneumonia aspiration [Unknown]
  - Akathisia [Recovering/Resolving]
  - Blood creatine phosphokinase increased [Recovering/Resolving]
  - Myoglobin blood increased [Recovering/Resolving]
  - Mydriasis [Recovering/Resolving]
  - Delirium [Unknown]
  - Confusional state [Recovering/Resolving]
  - Anxiety [Recovering/Resolving]
  - Consciousness fluctuating [Recovering/Resolving]
